FAERS Safety Report 9001746 (Version 1)
Quarter: 2013Q1

REPORT INFORMATION
  Report Type: Spontaneous
  Country: IT (occurrence: IT)
  Receive Date: 20130107
  Receipt Date: 20130107
  Transmission Date: 20140127
  Serious: Yes (Hospitalization)
  Sender: FDA-Public Use
  Company Number: IT-JNJFOC-20121213959

PATIENT
  Age: 13 Year
  Sex: Female

DRUGS (4)
  1. REMICADE [Suspect]
     Indication: COLITIS ULCERATIVE
     Dosage: 100 MG INFUSION
     Route: 042
     Dates: start: 20120418
  2. REMICADE [Suspect]
     Indication: COLITIS ULCERATIVE
     Route: 042
     Dates: start: 20121127
  3. ASACOL [Concomitant]
     Indication: COLITIS ULCERATIVE
     Route: 054
  4. PENTACOL [Concomitant]
     Indication: COLITIS ULCERATIVE
     Dosage: STRENGTH: 400 MG TABLET
     Route: 048
     Dates: start: 20080201

REACTIONS (3)
  - Cyanosis [Recovered/Resolved]
  - Dyspnoea [Recovered/Resolved]
  - Infusion related reaction [Recovered/Resolved]
